FAERS Safety Report 5981259-6 (Version None)
Quarter: 2008Q4

REPORT INFORMATION
  Report Type: 
  Country: None (occurrence: None)
  Receive Date: 20081126
  Receipt Date: 20080926
  Transmission Date: 20090506
  Serious: Yes (Hospitalization)
  Sender: FDA-Public Use
  Company Number: 2008BH010479

PATIENT
  Age: 35 Year
  Sex: Male

DRUGS (3)
  1. DIANEAL [Suspect]
     Indication: PERITONEAL DIALYSIS
     Dosage: 10 L;EVERY DAY;IP
     Route: 033
     Dates: start: 20071201
  2. DIANEAL [Suspect]
     Indication: PERITONEAL DIALYSIS
     Dosage: IP
     Route: 033
  3. BLOOD PRESSURE MEDICATION [Concomitant]

REACTIONS (2)
  - HYPERTENSION [None]
  - TREATMENT NONCOMPLIANCE [None]
